FAERS Safety Report 16485374 (Version 1)
Quarter: 2019Q2

REPORT INFORMATION
  Report Type: Spontaneous
  Country: US (occurrence: US)
  Receive Date: 20190627
  Receipt Date: 20190627
  Transmission Date: 20190711
  Serious: No
  Sender: FDA-Public Use
  Company Number: US-TEVA-2019-US-1064485

PATIENT
  Sex: Female

DRUGS (5)
  1. GENERIC ALPRAZOLAM [Concomitant]
     Indication: ANXIETY
     Route: 065
  2. XANAX [Concomitant]
     Active Substance: ALPRAZOLAM
     Indication: ANXIETY
     Route: 065
  3. DESIPRAMINE [Concomitant]
     Active Substance: DESIPRAMINE
     Indication: ANXIETY
     Route: 065
  4. QUETIAPINE FUMARATE TABLET [Suspect]
     Active Substance: QUETIAPINE FUMARATE
     Indication: ANXIETY
     Dosage: FORM STRENGTH: 50 UNIT NOT REPORTED.
     Route: 065
  5. QUETIAPINE FUMARATE TABLET [Suspect]
     Active Substance: QUETIAPINE FUMARATE
     Indication: DEPRESSION

REACTIONS (3)
  - Middle insomnia [Unknown]
  - Headache [Unknown]
  - Hyperhidrosis [Unknown]
